FAERS Safety Report 24729660 (Version 2)
Quarter: 2024Q4

REPORT INFORMATION
  Report Type: Spontaneous
  Country: AU (occurrence: AU)
  Receive Date: 20241213
  Receipt Date: 20241227
  Transmission Date: 20250115
  Serious: Yes (Life-Threatening, Hospitalization)
  Sender: STRIDES
  Company Number: None

PATIENT
  Age: 41 Year
  Sex: Male

DRUGS (4)
  1. PREDNISOLONE [Suspect]
     Active Substance: PREDNISOLONE
     Indication: Graft versus host disease in gastrointestinal tract
     Dosage: 25 MILLIGRAM, QD (FOR SEVERAL YEARS (}5))
     Route: 065
  2. PREDNISOLONE [Suspect]
     Active Substance: PREDNISOLONE
     Indication: Chronic graft versus host disease in skin
  3. RUXOLITINIB [Suspect]
     Active Substance: RUXOLITINIB
     Indication: Graft versus host disease in gastrointestinal tract
     Dosage: 5 MILLIGRAM, EVERY 12 HRS, FOR SEVERAL YEARS (}5)
     Route: 065
  4. RUXOLITINIB [Suspect]
     Active Substance: RUXOLITINIB
     Indication: Chronic graft versus host disease in skin

REACTIONS (13)
  - Shock [Unknown]
  - Cellulitis [Unknown]
  - Bacteraemia [Unknown]
  - Bronchopulmonary aspergillosis [Unknown]
  - Necrotising fasciitis [Unknown]
  - Infection [Unknown]
  - Skin bacterial infection [Unknown]
  - Soft tissue infection [Unknown]
  - Haematological infection [Unknown]
  - COVID-19 [Unknown]
  - Respiratory syncytial virus infection [Unknown]
  - Influenza [Unknown]
  - Bacterial infection [Unknown]

NARRATIVE: CASE EVENT DATE: 20230101
